FAERS Safety Report 19873042 (Version 1)
Quarter: 2021Q3

REPORT INFORMATION
  Report Type: Other
  Country: CA (occurrence: CA)
  Receive Date: 20210923
  Receipt Date: 20210923
  Transmission Date: 20211014
  Serious: Yes (Death, Life-Threatening, Hospitalization, Other)
  Sender: FDA-Public Use
  Company Number: CA-APOTEX-2021AP042704

PATIENT
  Age: 24 Year
  Sex: Female

DRUGS (8)
  1. GABAPENTIN. [Concomitant]
     Active Substance: GABAPENTIN
     Indication: PRODUCT USED FOR UNKNOWN INDICATION
     Dosage: 25.5 GRAM
     Route: 048
  2. GABAPENTIN. [Suspect]
     Active Substance: GABAPENTIN
     Indication: OVERDOSE
     Dosage: 25.5 GRAM
     Route: 048
  3. ACETAMINOPHEN. [Suspect]
     Active Substance: ACETAMINOPHEN
     Indication: OVERDOSE
  4. MORPHINE [Suspect]
     Active Substance: MORPHINE
     Dosage: 60 MILLIGRAM
     Route: 065
  5. MORPHINE [Concomitant]
     Active Substance: MORPHINE
     Indication: PRODUCT USED FOR UNKNOWN INDICATION
     Dosage: 60 MILLIGRAM
     Route: 048
  6. GABAPENTIN. [Suspect]
     Active Substance: GABAPENTIN
     Dosage: 25.5 GRAM
     Route: 065
  7. ACETAMINOPHEN. [Suspect]
     Active Substance: ACETAMINOPHEN
     Indication: INTENTIONAL OVERDOSE
     Dosage: 50 GRAM
     Route: 048
  8. MORPHINE [Suspect]
     Active Substance: MORPHINE
     Indication: PRODUCT USED FOR UNKNOWN INDICATION
     Dosage: 60 MILLIGRAM
     Route: 048

REACTIONS (19)
  - Depressed level of consciousness [Fatal]
  - Encephalopathy [Fatal]
  - Lactic acidosis [Fatal]
  - Acidosis [Fatal]
  - Brain oedema [Fatal]
  - Cerebral haemorrhage [Fatal]
  - Ileus [Fatal]
  - Acute kidney injury [Fatal]
  - Coagulopathy [Fatal]
  - Intentional overdose [Fatal]
  - Overdose [Fatal]
  - Metabolic acidosis [Fatal]
  - Analgesic drug level increased [Fatal]
  - Hypoglycaemia [Fatal]
  - Mental status changes [Fatal]
  - Hepatic failure [Fatal]
  - Acute hepatic failure [Fatal]
  - Diffuse axonal injury [Fatal]
  - Toxicity to various agents [Fatal]
